FAERS Safety Report 24852056 (Version 1)
Quarter: 2025Q1

REPORT INFORMATION
  Report Type: Spontaneous
  Country: US (occurrence: US)
  Receive Date: 20250116
  Receipt Date: 20250116
  Transmission Date: 20250409
  Serious: No
  Sender: SK LIFE SCIENCE
  Company Number: US-SK LIFE SCIENCE, INC-SKPVG-2024-002135

PATIENT

DRUGS (3)
  1. XCOPRI [Suspect]
     Active Substance: CENOBAMATE
     Indication: Epilepsy
     Route: 048
     Dates: start: 2024, end: 2024
  2. XCOPRI [Suspect]
     Active Substance: CENOBAMATE
     Dosage: 150 MG ONCE DAILY AT NIGHT
     Route: 048
     Dates: start: 2024, end: 20240907
  3. TOPIRAMATE [Concomitant]
     Active Substance: TOPIRAMATE
     Indication: Seizure
     Dosage: 300 MILLIGRAM (100MG TABLETS, THREE DAILY, ONE IN THE MORNING AND TWO AT NIGHT)
     Route: 065

REACTIONS (1)
  - Product dose omission issue [Not Recovered/Not Resolved]

NARRATIVE: CASE EVENT DATE: 20240908
